FAERS Safety Report 10031704 (Version 1)
Quarter: 2014Q1

REPORT INFORMATION
  Report Type: Spontaneous
  Country: US (occurrence: US)
  Receive Date: 20140324
  Receipt Date: 20140324
  Transmission Date: 20141002
  Serious: No
  Sender: FDA-Public Use
  Company Number: US-PFIZER INC-2014083437

PATIENT
  Sex: Female

DRUGS (2)
  1. CELEBREX [Suspect]
     Dosage: 200 MG
     Dates: start: 2014
  2. CELEBREX [Suspect]
     Dosage: 100 MG

REACTIONS (10)
  - Medication error [Unknown]
  - Drug dispensing error [Unknown]
  - Local swelling [Unknown]
  - Hypersensitivity [Unknown]
  - Upper respiratory tract congestion [Unknown]
  - Nerve compression [Unknown]
  - Gastrooesophageal reflux disease [Unknown]
  - Blood pressure increased [Unknown]
  - Chest pain [Unknown]
  - Drug ineffective [Unknown]
